FAERS Safety Report 9128629 (Version 2)
Quarter: 2013Q2

REPORT INFORMATION
  Report Type: Spontaneous
  Country: AU (occurrence: AU)
  Receive Date: 20130125
  Receipt Date: 20130412
  Transmission Date: 20140414
  Serious: Yes (Hospitalization)
  Sender: FDA-Public Use
  Company Number: PHHY2013AU005735

PATIENT
  Age: 77 Year
  Sex: Female

DRUGS (2)
  1. ONBREZ [Suspect]
     Dosage: 300 UG, UNK
  2. ONBREZ [Suspect]
     Dosage: UNK
     Route: 048

REACTIONS (3)
  - Gastrointestinal disorder [Unknown]
  - Flatulence [Unknown]
  - Incorrect route of drug administration [Unknown]
